FAERS Safety Report 6300497-6 (Version None)
Quarter: 2009Q3

REPORT INFORMATION
  Report Type: 
  Country: None (occurrence: None)
  Receive Date: 20090803
  Receipt Date: 20090720
  Transmission Date: 20100115
  Serious: Yes (Other)
  Sender: FDA-Public Use
  Company Number: 1000007634

PATIENT
  Age: 34 Year
  Sex: Male

DRUGS (4)
  1. CITALOPRAM HYDROBROMIDE [Suspect]
     Indication: DEPRESSION
     Dosage: 20 MG
  2. TRIFLUOPERAZINE HCL [Suspect]
     Dosage: 10 MG
  3. TRIHEXYPHENIDYL HCL [Suspect]
     Dosage: 2 MG
  4. PROPRANOLOL [Suspect]
     Dosage: 30 MG (10 MG, 3 IN 1 D)

REACTIONS (5)
  - BACK PAIN [None]
  - DYSPHAGIA [None]
  - DYSPNOEA [None]
  - NECK PAIN [None]
  - TARDIVE DYSKINESIA [None]
